FAERS Safety Report 9476102 (Version 3)
Quarter: 2013Q3

REPORT INFORMATION
  Report Type: Spontaneous
  Country: DK (occurrence: None)
  Receive Date: 20130821
  Receipt Date: 20130903
  Transmission Date: 20140515
  Serious: Yes (Other)
  Sender: FDA-Public Use
  Company Number: 1845724

PATIENT
  Age: 47 Year
  Sex: Female

DRUGS (9)
  1. EPIRUBICIN HYDROCHLORIDE [Suspect]
     Indication: PRODUCT USED FOR UNKNOWN INDICATION
  2. FLUOROURACIL [Suspect]
     Indication: PRODUCT USED FOR UNKNOWN INDICATION
  3. VINORELBINE [Suspect]
     Indication: PRODUCT USED FOR UNKNOWN INDICATION
  4. TRASTUZUMAB [Suspect]
     Indication: BREAST CANCER METASTATIC
  5. CAPECITABINE [Suspect]
     Indication: BREAST CANCER METASTATIC
  6. LAPATINIB [Suspect]
     Indication: BREAST CANCER METASTATIC
     Route: 048
  7. CYCLOPHOSPHAMIDE [Suspect]
     Indication: PRODUCT USED FOR UNKNOWN INDICATION
  8. DOCETAXEL [Suspect]
     Indication: PRODUCT USED FOR UNKNOWN INDICATION
  9. PREDNISOLONE [Concomitant]

REACTIONS (9)
  - Metastases to central nervous system [None]
  - Breast cancer recurrent [None]
  - White blood cell count increased [None]
  - Neutrophil count increased [None]
  - Blood calcium increased [None]
  - Blood lactate dehydrogenase increased [None]
  - Alanine aminotransferase increased [None]
  - Umbilical hernia [None]
  - Ovarian cyst [None]
